FAERS Safety Report 15676190 (Version 2)
Quarter: 2018Q4

REPORT INFORMATION
  Report Type: Spontaneous
  Country: DE (occurrence: DE)
  Receive Date: 20181130
  Receipt Date: 20181204
  Transmission Date: 20190205
  Serious: Yes (Other)
  Sender: FDA-Public Use
  Company Number: DE-TESARO-2018-TSO2059-DE

PATIENT
  Age: 50 Year
  Sex: Female

DRUGS (2)
  1. ZEJULA [Suspect]
     Active Substance: NIRAPARIB
     Indication: OVARIAN CANCER
     Dosage: 200 MG, QD
     Route: 048
     Dates: start: 201810
  2. ONDANSETRON [Concomitant]
     Active Substance: ONDANSETRON
     Indication: PRODUCT USED FOR UNKNOWN INDICATION

REACTIONS (8)
  - Enteritis [Unknown]
  - Haemoglobin decreased [Unknown]
  - Mean cell volume abnormal [Unknown]
  - Inflammatory bowel disease [Unknown]
  - Constipation [Unknown]
  - Red blood cell count decreased [Unknown]
  - Blood thyroid stimulating hormone decreased [Unknown]
  - Intestinal obstruction [Unknown]

NARRATIVE: CASE EVENT DATE: 20181120
